FAERS Safety Report 10682254 (Version 9)
Quarter: 2018Q3

REPORT INFORMATION
  Report Type: Report from Study
  Country: US (occurrence: US)
  Receive Date: 20141230
  Receipt Date: 20180713
  Transmission Date: 20181010
  Serious: Yes (Hospitalization, Disabling, Other)
  Sender: FDA-Public Use
  Company Number: US-SA-2014SA161666

PATIENT
  Age: 60 Year
  Sex: Female

DRUGS (5)
  1. NEURONTIN [Suspect]
     Active Substance: GABAPENTIN
     Dosage: UNK UNK,UNK
     Route: 065
  2. AMPYRA [Concomitant]
     Active Substance: DALFAMPRIDINE
     Dosage: UNK UNK,UNK
     Route: 065
     Dates: end: 201802
  3. TERIFLUNOMIDE [Suspect]
     Active Substance: TERIFLUNOMIDE
     Dosage: 14 UNK
  4. AMPYRA [Concomitant]
     Active Substance: DALFAMPRIDINE
     Dosage: UNK UNK,UNK
     Route: 065
  5. TERIFLUNOMIDE [Suspect]
     Active Substance: TERIFLUNOMIDE
     Indication: MULTIPLE SCLEROSIS
     Dosage: 14 MG,QD
     Route: 048
     Dates: start: 20141023, end: 20180220

REACTIONS (34)
  - Fatigue [Not Recovered/Not Resolved]
  - Hospitalisation [Unknown]
  - Muscular weakness [Unknown]
  - Tremor [Recovered/Resolved]
  - Limb injury [Recovered/Resolved]
  - Hypoaesthesia [Unknown]
  - Condition aggravated [Not Recovered/Not Resolved]
  - Hallucination [Unknown]
  - Overdose [Unknown]
  - Fall [Unknown]
  - Skin discolouration [Unknown]
  - Dysphagia [Unknown]
  - Peripheral swelling [Recovered/Resolved]
  - Drug dose omission [Unknown]
  - Feeling abnormal [Recovered/Resolved]
  - Fluid retention [Not Recovered/Not Resolved]
  - Paraesthesia [Unknown]
  - Full blood count increased [Unknown]
  - Shoulder operation [Unknown]
  - Spinal operation [Unknown]
  - Sepsis [Recovered/Resolved]
  - Hypersomnia [Not Recovered/Not Resolved]
  - Gait disturbance [Not Recovered/Not Resolved]
  - Musculoskeletal pain [Unknown]
  - Blood creatinine increased [Unknown]
  - Blood test abnormal [Unknown]
  - Hepatic enzyme increased [Not Recovered/Not Resolved]
  - Muscle rupture [Unknown]
  - Somnolence [Not Recovered/Not Resolved]
  - Loss of consciousness [Recovered/Resolved]
  - Pain [Unknown]
  - Claustrophobia [Unknown]
  - Condition aggravated [Unknown]
  - Medication error [Unknown]

NARRATIVE: CASE EVENT DATE: 2014
